FAERS Safety Report 4746253-1 (Version None)
Quarter: 2005Q3

REPORT INFORMATION
  Report Type: 
  Country: None (occurrence: None)
  Receive Date: 20050816
  Receipt Date: 20050805
  Transmission Date: 20060218
  Serious: Yes (Hospitalization, Other)
  Sender: FDA-Public Use
  Company Number: KII-2005-0017899

PATIENT
  Age: 47 Year
  Sex: Female

DRUGS (1)
  1. MORPHINE SULFATE [Suspect]
     Dosage: SEE TEXT, ORAL
     Route: 048

REACTIONS (14)
  - ABNORMAL BEHAVIOUR [None]
  - ACIDOSIS [None]
  - ANURIA [None]
  - BLOOD CREATININE INCREASED [None]
  - BLOOD PRESSURE DECREASED [None]
  - BLOOD UREA INCREASED [None]
  - COMA [None]
  - DEPRESSED LEVEL OF CONSCIOUSNESS [None]
  - DIALYSIS [None]
  - DYSARTHRIA [None]
  - FLAT AFFECT [None]
  - OVERDOSE [None]
  - PARANOIA [None]
  - RHABDOMYOLYSIS [None]
